FAERS Safety Report 8032464-9 (Version None)
Quarter: 2012Q1

REPORT INFORMATION
  Report Type: 
  Country: None (occurrence: None)
  Receive Date: 20120110
  Receipt Date: 20120104
  Transmission Date: 20120608
  Serious: Yes (Hospitalization)
  Sender: FDA-Public Use
  Company Number: JP-JNJFOC-20120101591

PATIENT
  Sex: Female
  Weight: 40 kg

DRUGS (8)
  1. CARVEDILOL [Concomitant]
     Indication: CARDIAC FAILURE CHRONIC
     Route: 048
  2. MAGMITT [Concomitant]
     Indication: CONSTIPATION
     Route: 048
  3. GALANTAMINE HYDROBROMIDE [Suspect]
     Indication: DEMENTIA ALZHEIMER'S TYPE
     Route: 048
     Dates: start: 20111221, end: 20111222
  4. DILTIAZEM HCL [Concomitant]
     Indication: HYPERTENSION
     Route: 048
  5. PLETAL [Suspect]
     Indication: CEREBROVASCULAR DISORDER
     Route: 048
     Dates: end: 20111228
  6. NEXIUM [Concomitant]
     Indication: GASTRIC ULCER
     Route: 048
  7. ATENOLOL [Concomitant]
     Indication: HYPERTENSION
     Route: 048
  8. OLMESARTAN MEDOXOMIL [Concomitant]
     Indication: HYPERTENSION
     Route: 048

REACTIONS (3)
  - MALLORY-WEISS SYNDROME [None]
  - VOMITING [None]
  - HAEMATEMESIS [None]
